FAERS Safety Report 7129361-X (Version None)
Quarter: 2010Q4

REPORT INFORMATION
  Report Type: 
  Country: None (occurrence: None)
  Receive Date: 20101130
  Receipt Date: 20101118
  Transmission Date: 20110411
  Serious: No
  Sender: FDA-Public Use
  Company Number: US-PFIZER INC-2010152695

PATIENT
  Sex: Female
  Weight: 90.249 kg

DRUGS (2)
  1. PREMPRO [Suspect]
     Dosage: 0.625/2.5MG, UNSPECIFIED FREQUENCY
     Route: 048
     Dates: start: 20100911
  2. FOSAMAX [Concomitant]
     Dosage: 35 MG, WEEKLY

REACTIONS (4)
  - FATIGUE [None]
  - FEELING HOT [None]
  - INSOMNIA [None]
  - WRONG TECHNIQUE IN DRUG USAGE PROCESS [None]
